FAERS Safety Report 7260854-0 (Version None)
Quarter: 2011Q1

REPORT INFORMATION
  Report Type: 
  Country: None (occurrence: None)
  Receive Date: 20110128
  Receipt Date: 20110128
  Transmission Date: 20110831
  Serious: Yes (Hospitalization)
  Sender: FDA-Public Use
  Company Number: None

PATIENT
  Age: 46 Year
  Sex: Female
  Weight: 67.1324 kg

DRUGS (2)
  1. TRAID PREP PADS 70% STERILE ALCOHOL TRAID [Suspect]
  2. TRAID PREP PADS 70% STERILE ALCOHOL TRAID [Suspect]
     Indication: MULTIPLE SCLEROSIS
     Dates: start: 20101101, end: 20110110

REACTIONS (7)
  - OROPHARYNGEAL PAIN [None]
  - INJECTION SITE ERYTHEMA [None]
  - EAR PAIN [None]
  - INJECTION SITE PAIN [None]
  - INJECTION SITE SWELLING [None]
  - INFECTION [None]
  - FATIGUE [None]
